FAERS Safety Report 15892131 (Version 1)
Quarter: 2019Q1

REPORT INFORMATION
  Report Type: Report from Study
  Country: US (occurrence: US)
  Receive Date: 20190130
  Receipt Date: 20190130
  Transmission Date: 20190417
  Serious: No
  Sender: FDA-Public Use
  Company Number: US-EXELIXIS-CABO-18014823

PATIENT
  Sex: Female

DRUGS (2)
  1. CABOMETYX [Suspect]
     Active Substance: CABOZANTINIB S-MALATE
     Indication: RENAL CANCER
     Dosage: 60 MG, UNK
     Dates: start: 20180610, end: 20180704
  2. CABOMETYX [Suspect]
     Active Substance: CABOZANTINIB S-MALATE
     Dosage: 40 MG, QD (WITHOUT FOOD IN THE MORNING)
     Dates: start: 20180727, end: 20180924

REACTIONS (6)
  - Oropharyngeal pain [Unknown]
  - Metastases to lung [Unknown]
  - Contusion [Recovered/Resolved]
  - Gastrooesophageal reflux disease [Recovering/Resolving]
  - Stomatitis [Recovered/Resolved]
  - Drug ineffective [Unknown]

NARRATIVE: CASE EVENT DATE: 2018
